FAERS Safety Report 5798010-5 (Version None)
Quarter: 2008Q3

REPORT INFORMATION
  Report Type: 
  Country: None (occurrence: None)
  Receive Date: 20080702
  Receipt Date: 20070326
  Transmission Date: 20090109
  Serious: Yes (Other)
  Sender: FDA-Public Use
  Company Number: B0463426A

PATIENT
  Age: 5 Year
  Sex: Male

DRUGS (1)
  1. HALOFANTRINE [Suspect]
     Indication: MALARIA
     Dosage: 8MGK SEE DOSAGE TEXT
     Route: 065

REACTIONS (6)
  - BLOOD URINE PRESENT [None]
  - BODY TEMPERATURE INCREASED [None]
  - CHROMATURIA [None]
  - HAEMATOCRIT DECREASED [None]
  - INTRAVASCULAR HAEMOLYSIS [None]
  - MALAISE [None]
